FAERS Safety Report 6379956-6 (Version None)
Quarter: 2009Q3

REPORT INFORMATION
  Report Type: 
  Country: None (occurrence: None)
  Receive Date: 20090928
  Receipt Date: 20090923
  Transmission Date: 20100115
  Serious: No
  Sender: FDA-Public Use
  Company Number: US-ROXANE LABORATORIES, INC.-2009-RO-00988RO

PATIENT
  Sex: Male

DRUGS (1)
  1. METHADONE HYDROCHLORIDE [Suspect]
     Indication: BACK PAIN

REACTIONS (3)
  - DRUG INEFFECTIVE [None]
  - DRY MOUTH [None]
  - SOMNOLENCE [None]
